FAERS Safety Report 21964199 (Version 1)
Quarter: 2023Q1

REPORT INFORMATION
  Report Type: Spontaneous
  Country: US (occurrence: None)
  Receive Date: 20230206
  Receipt Date: 20230206
  Transmission Date: 20230417
  Serious: Yes (Death)
  Sender: FDA-Public Use
  Company Number: None

PATIENT
  Age: 69 Year
  Sex: Female
  Weight: 101.6 kg

DRUGS (1)
  1. LAPINE T-LYMPHOCYTE IMMUNE GLOBULIN [Suspect]
     Active Substance: LAPINE T-LYMPHOCYTE IMMUNE GLOBULIN
     Indication: Renal transplant
     Dosage: FREQUENCY : ONCE;?
     Route: 042

REACTIONS (14)
  - Multiple organ dysfunction syndrome [None]
  - Ischaemia [None]
  - Renal-limited thrombotic microangiopathy [None]
  - Mental status changes [None]
  - Lactic acidosis [None]
  - Hypotension [None]
  - Septic shock [None]
  - Transplant rejection [None]
  - Liver function test increased [None]
  - Ammonia increased [None]
  - Atypical haemolytic uraemic syndrome [None]
  - Microangiopathic haemolytic anaemia [None]
  - Cytokine release syndrome [None]
  - Haemophagocytic lymphohistiocytosis [None]

NARRATIVE: CASE EVENT DATE: 20230206
